FAERS Safety Report 8711680 (Version 3)
Quarter: 2013Q3

REPORT INFORMATION
  Report Type: Report from Study
  Country: US (occurrence: US)
  Receive Date: 20120807
  Receipt Date: 20130719
  Transmission Date: 20140515
  Serious: Yes (Other)
  Sender: FDA-Public Use
  Company Number: US-BRISTOL-MYERS SQUIBB COMPANY-16824740

PATIENT
  Age: 61 Year
  Sex: Male

DRUGS (6)
  1. METFORMIN HCL [Suspect]
     Indication: TYPE 2 DIABETES MELLITUS
  2. GLIPIZIDE [Suspect]
     Indication: TYPE 2 DIABETES MELLITUS
  3. PLACEBO [Suspect]
     Indication: TYPE 2 DIABETES MELLITUS
     Dates: start: 20110421
  4. ASPIRIN [Concomitant]
     Dates: start: 20120420
  5. NIACIN [Concomitant]
     Dates: start: 20110421
  6. TRAZODONE HCL [Concomitant]
     Route: 048

REACTIONS (1)
  - Oesophageal candidiasis [Recovering/Resolving]
